FAERS Safety Report 14963956 (Version 2)
Quarter: 2018Q3

REPORT INFORMATION
  Report Type: Spontaneous
  Country: JP (occurrence: JP)
  Receive Date: 20180601
  Receipt Date: 20180705
  Transmission Date: 20181010
  Serious: Yes (Hospitalization, Other)
  Sender: FDA-Public Use
  Company Number: JP-PFIZER INC-2018215807

PATIENT
  Age: 57 Year
  Sex: Male

DRUGS (4)
  1. CLARITH [Concomitant]
     Active Substance: CLARITHROMYCIN
     Dosage: UNK
     Dates: start: 201609
  2. INLYTA [Suspect]
     Active Substance: AXITINIB
     Dosage: MAINTAINED BETWEEN 2 TO 4 MG, DAILY
     Route: 048
     Dates: start: 201610, end: 201804
  3. INLYTA [Suspect]
     Active Substance: AXITINIB
     Dosage: 2 MG, DAILY
     Route: 048
     Dates: start: 201610
  4. INLYTA [Suspect]
     Active Substance: AXITINIB
     Indication: METASTATIC RENAL CELL CARCINOMA
     Dosage: 6 MG, DAILY
     Route: 048
     Dates: start: 201609

REACTIONS (4)
  - Fall [Unknown]
  - Palmar-plantar erythrodysaesthesia syndrome [Recovering/Resolving]
  - Ilium fracture [Recovering/Resolving]
  - Neoplasm progression [Recovering/Resolving]

NARRATIVE: CASE EVENT DATE: 201610
